FAERS Safety Report 7112998-1 (Version None)
Quarter: 2010Q4

REPORT INFORMATION
  Report Type: 
  Country: None (occurrence: None)
  Receive Date: 20101119
  Receipt Date: 20101001
  Transmission Date: 20110411
  Serious: No
  Sender: FDA-Public Use
  Company Number: US-ASTRAZENECA-2010SE46402

PATIENT
  Age: 61 Year
  Sex: Female

DRUGS (1)
  1. VILMOVO [Suspect]
     Indication: MUSCULOSKELETAL PAIN
     Route: 048
     Dates: start: 20100914

REACTIONS (1)
  - WEIGHT INCREASED [None]
